FAERS Safety Report 12998450 (Version 1)
Quarter: 2016Q4

REPORT INFORMATION
  Report Type: Report from Study
  Country: None (occurrence: CO)
  Receive Date: 20161205
  Receipt Date: 20161205
  Transmission Date: 20170207
  Serious: Yes (Hospitalization)
  Sender: FDA-Public Use
  Company Number: CO-ABBVIE-16P-036-1800175-00

PATIENT
  Age: 29 Year
  Sex: Female
  Weight: 46 kg

DRUGS (2)
  1. MESALAZINE GRANULES [Concomitant]
     Indication: PRODUCT USED FOR UNKNOWN INDICATION
  2. HUMIRA [Suspect]
     Active Substance: ADALIMUMAB
     Indication: CROHN^S DISEASE
     Route: 058
     Dates: start: 20160824

REACTIONS (1)
  - Pelvic inflammatory disease [Recovered/Resolved]

NARRATIVE: CASE EVENT DATE: 20161118
